FAERS Safety Report 4525970-2 (Version None)
Quarter: 2004Q4

REPORT INFORMATION
  Report Type: 
  Country: None (occurrence: None)
  Receive Date: 20041213
  Receipt Date: 20041213
  Transmission Date: 20050328
  Serious: Yes (Life-Threatening)
  Sender: FDA-Public Use
  Company Number: None

PATIENT
  Age: 6 Month
  Sex: Male
  Weight: 17.2367 kg

DRUGS (1)
  1. ADDERALL XR 25 [Suspect]
     Dates: start: 20020505, end: 20041205

REACTIONS (5)
  - CARDIAC DISORDER [None]
  - CARDIAC OPERATION [None]
  - CYANOSIS [None]
  - LOSS OF CONSCIOUSNESS [None]
  - SKIN DISCOLOURATION [None]
